FAERS Safety Report 5274088-2 (Version None)
Quarter: 2007Q1

REPORT INFORMATION
  Report Type: 
  Country: None (occurrence: None)
  Receive Date: 20070323
  Receipt Date: 20070316
  Transmission Date: 20070707
  Serious: Yes (Life-Threatening, Hospitalization, Other)
  Sender: FDA-Public Use
  Company Number: CHWYE062216MAR07

PATIENT
  Age: 48 Year
  Sex: Female

DRUGS (7)
  1. TAZOBAC [Suspect]
     Indication: PNEUMONIA
     Dates: start: 20070205
  2. NEXIUM [Concomitant]
     Route: 048
  3. MORPHINE [Concomitant]
     Dosage: 1 DOSE EVERY 1 PRN
  4. RIVOTRIL [Suspect]
     Indication: EPILEPSY
     Dates: start: 20061224, end: 20061224
  5. RIVOTRIL [Suspect]
     Dates: start: 20061226
  6. RIVOTRIL [Suspect]
     Dosage: 1 MG EVERY 1 TOT
     Dates: start: 20070205, end: 20070205
  7. TIENAM [Suspect]
     Indication: PNEUMONIA
     Dosage: 500 MG EVERY 1 TOT
     Route: 040
     Dates: start: 20070205, end: 20070206

REACTIONS (5)
  - CONDITION AGGRAVATED [None]
  - EPILEPSY [None]
  - HYPONATRAEMIA [None]
  - LEUKOENCEPHALOPATHY [None]
  - STUPOR [None]
